FAERS Safety Report 21739804 (Version 1)
Quarter: 2022Q4

REPORT INFORMATION
  Report Type: Report from Study
  Country: US (occurrence: US)
  Receive Date: 20221216
  Receipt Date: 20221216
  Transmission Date: 20230112
  Serious: No
  Sender: FDA-Public Use
  Company Number: US-ABBVIE-4200071

PATIENT
  Age: 56 Year
  Sex: Male
  Weight: 49.895 kg

DRUGS (1)
  1. MAVYRET [Suspect]
     Active Substance: GLECAPREVIR\PIBRENTASVIR
     Indication: Hepatitis C
     Dosage: 100-40 MG
     Route: 048
     Dates: start: 201906, end: 201908

REACTIONS (1)
  - Viraemia [Not Recovered/Not Resolved]

NARRATIVE: CASE EVENT DATE: 20221111
